FAERS Safety Report 8840893 (Version 2)
Quarter: 2012Q4

REPORT INFORMATION
  Report Type: 
  Country: JP (occurrence: JP)
  Receive Date: 20121015
  Receipt Date: 20121023
  Transmission Date: 20130627
  Serious: Yes (Other)
  Sender: FDA-Public Use
  Company Number: JP-SANOFI-AVENTIS-2012SA075015

PATIENT
  Age: 77 Year
  Sex: Female

DRUGS (6)
  1. MYSLEE [Suspect]
     Indication: DRUG USE FOR UNKNOWN INDICATION
     Route: 048
     Dates: start: 201009
  2. TAKEPRON [Concomitant]
  3. MAGNESIUM OXIDE [Concomitant]
     Route: 048
  4. MUCOSTA [Concomitant]
     Route: 048
  5. JUZENTAIHOTO [Concomitant]
     Route: 048
  6. GABAPENTIN [Concomitant]
     Route: 048

REACTIONS (1)
  - Urinary retention [Unknown]
